FAERS Safety Report 4749170-6 (Version None)
Quarter: 2005Q3

REPORT INFORMATION
  Report Type: 
  Country: None (occurrence: None)
  Receive Date: 20050817
  Receipt Date: 20050809
  Transmission Date: 20060218
  Serious: No
  Sender: FDA-Public Use
  Company Number: 2005-131271-NL

PATIENT
  Age: 77 Year
  Sex: Female

DRUGS (1)
  1. MIRTAZAPINE [Suspect]
     Dosage: 15 MG

REACTIONS (6)
  - ASTHENIA [None]
  - DYSARTHRIA [None]
  - FACIAL PALSY [None]
  - FALL [None]
  - HYPONATRAEMIA [None]
  - INCONTINENCE [None]
